FAERS Safety Report 9541474 (Version 1)
Quarter: 2013Q3

REPORT INFORMATION
  Report Type: Spontaneous
  Country: FR (occurrence: FR)
  Receive Date: 20130923
  Receipt Date: 20130923
  Transmission Date: 20140515
  Serious: Yes (Other)
  Sender: FDA-Public Use
  Company Number: FR-BRISTOL-MYERS SQUIBB COMPANY-19382902

PATIENT
  Age: 76 Year
  Sex: Female

DRUGS (7)
  1. REYATAZ CAPS [Suspect]
     Indication: HIV INFECTION
     Route: 048
     Dates: start: 20111216, end: 20130319
  2. OLMETEC [Concomitant]
     Dates: start: 20111216
  3. DAFALGAN [Concomitant]
     Dates: start: 20111216
  4. COLTRAMYL [Concomitant]
     Dates: start: 20111216
  5. KIVEXA [Concomitant]
     Dates: start: 20111216
  6. ZIAGEN [Concomitant]
     Dates: start: 20111216
  7. EPIVIR [Concomitant]
     Dates: start: 20111216

REACTIONS (1)
  - Tendon disorder [Recovered/Resolved]
